FAERS Safety Report 7753818-1 (Version None)
Quarter: 2011Q3

REPORT INFORMATION
  Report Type: 
  Country: None (occurrence: None)
  Receive Date: 20110915
  Receipt Date: 20110909
  Transmission Date: 20111222
  Serious: Yes (Life-Threatening, Other)
  Sender: FDA-Public Use
  Company Number: JP-MERCK-1108USA03150

PATIENT
  Age: 68 Year
  Sex: Male
  Weight: 62 kg

DRUGS (12)
  1. LAXOBERON [Concomitant]
     Indication: CONSTIPATION
     Route: 065
     Dates: start: 20100512, end: 20100622
  2. BIOFERMIN [Concomitant]
     Indication: DIARRHOEA
     Route: 065
     Dates: start: 20100522, end: 20100702
  3. PHENOBARBITAL TAB [Concomitant]
     Indication: EPILEPSY
     Route: 065
     Dates: start: 20100512, end: 20100702
  4. MAGNESIUM OXIDE [Concomitant]
     Indication: CONSTIPATION
     Route: 065
     Dates: start: 20100520, end: 20100624
  5. LEVOFLOXACIN [Concomitant]
     Indication: BRONCHITIS
     Route: 065
     Dates: start: 20100602, end: 20100606
  6. MUCODYNE [Concomitant]
     Indication: BRONCHITIS
     Route: 065
     Dates: start: 20100614, end: 20100628
  7. ENTOMOL [Concomitant]
     Indication: DIARRHOEA
     Route: 065
     Dates: start: 20100512, end: 20100521
  8. PERIACTIN [Concomitant]
     Indication: BRONCHITIS
     Route: 055
     Dates: start: 20100622, end: 20100625
  9. PEPCID [Suspect]
     Indication: GASTRIC HAEMORRHAGE
     Route: 048
     Dates: start: 20100512, end: 20100706
  10. PANTOSIN [Concomitant]
     Indication: CONSTIPATION
     Route: 065
     Dates: start: 20100520, end: 20100624
  11. PRIMPERAN TAB [Concomitant]
     Indication: VOMITING
     Route: 065
     Dates: start: 20100512, end: 20100525
  12. GASMOTIN [Concomitant]
     Route: 065
     Dates: start: 20100526, end: 20100702

REACTIONS (4)
  - HEPATIC FUNCTION ABNORMAL [None]
  - TOXIC EPIDERMAL NECROLYSIS [None]
  - BRONCHITIS [None]
  - PNEUMONIA ASPIRATION [None]
